FAERS Safety Report 14950702 (Version 1)
Quarter: 2018Q2

REPORT INFORMATION
  Report Type: Spontaneous
  Country: US (occurrence: US)
  Receive Date: 20180508
  Receipt Date: 20180508
  Transmission Date: 20180711
  Serious: No
  Sender: FDA-Public Use
  Company Number: None

PATIENT
  Age: 61 Year
  Sex: Female
  Weight: 77.11 kg

DRUGS (14)
  1. PROVENTIL HFA [Suspect]
     Active Substance: ALBUTEROL SULFATE
     Indication: DYSPNOEA
  2. SERTRALINE [Concomitant]
     Active Substance: SERTRALINE HYDROCHLORIDE
  3. FOLIC ACID. [Concomitant]
     Active Substance: FOLIC ACID
  4. 81 APIRIN [Concomitant]
  5. VITAMIN D [Concomitant]
     Active Substance: CHOLECALCIFEROL
  6. ALBUTEROL SULFATE. [Concomitant]
     Active Substance: ALBUTEROL SULFATE
  7. MULIVITAMIN [Concomitant]
  8. HYDROCHLOROTHIAZIDE AND LISINOPRIL [Concomitant]
     Active Substance: HYDROCHLOROTHIAZIDE\LISINOPRIL
  9. KLOR-CON [Concomitant]
     Active Substance: POTASSIUM CHLORIDE
  10. RANITIDINE. [Concomitant]
     Active Substance: RANITIDINE
  11. SIMVASTATIN. [Concomitant]
     Active Substance: SIMVASTATIN
  12. B COMPOND [Concomitant]
  13. FERROUS SUL E [Concomitant]
  14. PROVENTIL HFA [Suspect]
     Active Substance: ALBUTEROL SULFATE
     Indication: COUGH
     Dosage: ?          OTHER ROUTE:INHALE IN MOUTH?
     Dates: start: 20171010

REACTIONS (2)
  - Device malfunction [None]
  - Alopecia [None]

NARRATIVE: CASE EVENT DATE: 20180203
